FAERS Safety Report 17871063 (Version 1)
Quarter: 2020Q2

REPORT INFORMATION
  Report Type: Spontaneous
  Country: US (occurrence: US)
  Receive Date: 20200608
  Receipt Date: 20200608
  Transmission Date: 20200714
  Serious: Yes (Other)
  Sender: FDA-Public Use
  Company Number: None

PATIENT
  Age: 85 Year
  Sex: Male
  Weight: 86.4 kg

DRUGS (11)
  1. TAMSULOSIN [Concomitant]
     Active Substance: TAMSULOSIN
  2. PREDNISONE. [Suspect]
     Active Substance: PREDNISONE
     Indication: PROSTATE CANCER
     Route: 048
     Dates: start: 20200513
  3. CENTRUM SILVER [Concomitant]
     Active Substance: MINERALS\VITAMINS
  4. ALLOPURINOL. [Concomitant]
     Active Substance: ALLOPURINOL
  5. ABIRATERONE. [Suspect]
     Active Substance: ABIRATERONE ACETATE
     Indication: PROSTATE CANCER
     Route: 048
     Dates: start: 20200513
  6. POLYETHYLENE GYLCOL [Concomitant]
     Active Substance: POLYETHYLENE GLYCOLS
  7. LEVOTHYROXINE. [Concomitant]
     Active Substance: LEVOTHYROXINE
  8. LEVOTHYROXINE. [Concomitant]
     Active Substance: LEVOTHYROXINE
  9. MEGESTROL [Concomitant]
     Active Substance: MEGESTROL
  10. TRAMADOL. [Concomitant]
     Active Substance: TRAMADOL
  11. FENTANYL. [Concomitant]
     Active Substance: FENTANYL

REACTIONS (1)
  - Insomnia [None]

NARRATIVE: CASE EVENT DATE: 20200607
